FAERS Safety Report 6097064-9 (Version None)
Quarter: 2009Q1

REPORT INFORMATION
  Report Type: 
  Country: None (occurrence: None)
  Receive Date: 20090225
  Receipt Date: 20090217
  Transmission Date: 20090719
  Serious: Yes (Hospitalization)
  Sender: FDA-Public Use
  Company Number: 1000004820

PATIENT
  Age: 85 Year
  Sex: Female

DRUGS (7)
  1. NEBIVOLOL HCL [Suspect]
     Dosage: ORAL
     Route: 048
  2. METOPROLOL TARTRATE [Suspect]
     Dosage: ORAL
     Route: 048
     Dates: end: 20081119
  3. AMLOR [Suspect]
     Dosage: 5 MG (5 MG), ORAL
     Route: 048
  4. ZOLPIDEM TARTRATE [Concomitant]
  5. CERIS [Concomitant]
  6. PRAVASTATIN SODIUM [Concomitant]
  7. LOVENOX [Concomitant]

REACTIONS (3)
  - ATRIAL FIBRILLATION [None]
  - FALL [None]
  - FEMUR FRACTURE [None]
